FAERS Safety Report 25955350 (Version 1)
Quarter: 2025Q4

REPORT INFORMATION
  Report Type: Report from Study
  Country: JP (occurrence: JP)
  Receive Date: 20251024
  Receipt Date: 20251024
  Transmission Date: 20260117
  Serious: Yes (Hospitalization, Other)
  Sender: IPSEN BIOPHARMACEUTICALS, INC.
  Company Number: JP-SERVIER-S22012641

PATIENT
  Age: 73 Year
  Sex: Female
  Weight: 43.5 kg

DRUGS (13)
  1. ONIVYDE [Suspect]
     Active Substance: IRINOTECAN HYDROCHLORIDE
     Indication: Pancreatic carcinoma metastatic
     Dosage: 95.9 MG/ BODY
  2. ONIVYDE [Suspect]
     Active Substance: IRINOTECAN HYDROCHLORIDE
     Dosage: 76.7 MG/ BODY
  3. ONIVYDE [Suspect]
     Active Substance: IRINOTECAN HYDROCHLORIDE
     Dosage: 58.9 MG/ BODY
  4. ONIVYDE [Suspect]
     Active Substance: IRINOTECAN HYDROCHLORIDE
     Dosage: 58.9 MG/ BODY
  5. TS-1 [Concomitant]
     Active Substance: GIMERACIL\OTERACIL POTASSIUM\TEGAFUR
     Indication: Pancreatic carcinoma metastatic
     Dosage: 100 MG/BODY, DAY 1-7
     Dates: start: 20220810, end: 20221109
  6. TS-1 [Concomitant]
     Active Substance: GIMERACIL\OTERACIL POTASSIUM\TEGAFUR
     Dosage: 100 MG/BODY, DAY 1-7
  7. DECADRON [Concomitant]
     Active Substance: DEXAMETHASONE
     Indication: Product used for unknown indication
     Dosage: UNK
  8. ELDECALCITOL [Concomitant]
     Active Substance: ELDECALCITOL
     Indication: Osteoporosis
     Dosage: 75 ?G, QD
     Dates: start: 20220112
  9. ELDECALCITOL [Concomitant]
     Active Substance: ELDECALCITOL
     Dosage: 75 ?G, QD
     Dates: start: 20230107
  10. CALCIUM ASPARTATE [Concomitant]
     Active Substance: CALCIUM ASPARTATE
     Indication: Osteoporosis
     Dosage: 400 MG, BID
     Dates: start: 20220112
  11. CALCIUM ASPARTATE [Concomitant]
     Active Substance: CALCIUM ASPARTATE
     Dosage: 400 MG, BID
     Dates: start: 20230107
  12. BONALON [Concomitant]
     Active Substance: ALENDRONATE SODIUM
     Indication: Osteoporosis
     Dosage: 35 MG, 1X/WEEK
     Dates: start: 20220112
  13. BONALON [Concomitant]
     Active Substance: ALENDRONATE SODIUM
     Dosage: 35 MG, 1X/WEEK
     Dates: start: 20230107

REACTIONS (7)
  - Compression fracture [Recovered/Resolved]
  - Hypokalaemia [Unknown]
  - Blood bilirubin increased [Unknown]
  - Aspartate aminotransferase increased [Unknown]
  - Alanine aminotransferase increased [Unknown]
  - Hypoalbuminaemia [Unknown]
  - Blood alkaline phosphatase increased [Unknown]

NARRATIVE: CASE EVENT DATE: 20221205
